FAERS Safety Report 7987029-1 (Version None)
Quarter: 2011Q4

REPORT INFORMATION
  Report Type: 
  Country: None (occurrence: None)
  Receive Date: 20111216
  Receipt Date: 20110314
  Transmission Date: 20120403
  Serious: No
  Sender: FDA-Public Use
  Company Number: US-BRISTOL-MYERS SQUIBB COMPANY-15605314

PATIENT
  Age: 23 Year
  Sex: Female

DRUGS (3)
  1. ABILIFY [Suspect]
     Indication: BIPOLAR II DISORDER
     Dosage: REDUCED TO 10 MG
     Dates: start: 20110201
  2. PAXIL [Concomitant]
  3. TRAZODONE HCL [Concomitant]

REACTIONS (4)
  - TREMOR [None]
  - POSTURE ABNORMAL [None]
  - GAIT DISTURBANCE [None]
  - HEAD DISCOMFORT [None]
